FAERS Safety Report 8924030 (Version 1)
Quarter: 2012Q4

REPORT INFORMATION
  Report Type: Spontaneous
  Country: GB (occurrence: None)
  Receive Date: 20121116
  Receipt Date: 20121116
  Transmission Date: 20130627
  Serious: Yes (Other)
  Sender: FDA-Public Use
  Company Number: AUR-APL-2012-04853

PATIENT
  Age: 64 Year
  Sex: Female

DRUGS (3)
  1. SIMVASTATIN [Suspect]
     Indication: HYPERTENSION
     Dosage: (40 mg, 2 in 1 d),
     Route: 048
  2. LERCANIDIPINE [Suspect]
  3. CANDESARTAN CILEXETIL [Concomitant]

REACTIONS (2)
  - Arthralgia [None]
  - Myopathy [None]
